FAERS Safety Report 9569235 (Version 2)
Quarter: 2014Q1

REPORT INFORMATION
  Report Type: Spontaneous
  Country: US (occurrence: US)
  Receive Date: 20130930
  Receipt Date: 20140303
  Transmission Date: 20141002
  Serious: No
  Sender: FDA-Public Use
  Company Number: US-AMGEN-USASP2013058585

PATIENT
  Age: 55 Year
  Sex: Male
  Weight: 79.37 kg

DRUGS (12)
  1. ENBREL [Suspect]
     Indication: ANKYLOSING SPONDYLITIS
     Dosage: UNK
     Route: 058
     Dates: start: 20130707, end: 20130908
  2. ENBREL [Suspect]
     Indication: RHEUMATOID ARTHRITIS
  3. FENTANYL [Suspect]
     Indication: PRODUCT USED FOR UNKNOWN INDICATION
     Dosage: UNK
     Route: 065
  4. CENTRUM                            /06095001/ [Concomitant]
     Dosage: UNK
  5. VICOPROFEN [Concomitant]
     Dosage: 7.5-200, UNK
  6. FLUOXETINE [Concomitant]
     Dosage: 10 MG, UNK
  7. ALAWAY [Concomitant]
     Dosage: 0.025 %, UNK
     Route: 047
  8. GLUCOSAMIN CHONDROITIN             /01430901/ [Concomitant]
     Dosage: 500-400, UNK
  9. TYLENOL ARTHRITIS [Concomitant]
     Dosage: 650 MG, UNK
  10. PREDNISOL                          /00016201/ [Concomitant]
     Dosage: 1 %, UNK
     Route: 047
  11. METHYLPRED [Concomitant]
     Dosage: 16 MG, UNK
  12. HUMIRA [Concomitant]
     Dosage: PEN KIT 40 MG/0.8

REACTIONS (13)
  - Drug ineffective [Unknown]
  - Fatigue [Unknown]
  - Somnolence [Unknown]
  - Dizziness [Recovered/Resolved]
  - Feeling of body temperature change [Recovered/Resolved]
  - Dysarthria [Unknown]
  - Insomnia [Unknown]
  - Restlessness [Unknown]
  - Gingival bleeding [Unknown]
  - Back pain [Not Recovered/Not Resolved]
  - Musculoskeletal stiffness [Not Recovered/Not Resolved]
  - Vomiting [Recovered/Resolved]
  - Asthenia [Recovered/Resolved]
